FAERS Safety Report 5414981-0 (Version None)
Quarter: 2007Q3

REPORT INFORMATION
  Report Type: 
  Country: None (occurrence: None)
  Receive Date: 20070815
  Receipt Date: 20070626
  Transmission Date: 20080115
  Serious: Yes (Other)
  Sender: FDA-Public Use
  Company Number: JP-BRISTOL-MYERS SQUIBB COMPANY-12641791

PATIENT
  Age: 41 Year
  Sex: Male

DRUGS (9)
  1. EFAVIRENZ [Suspect]
     Indication: HIV INFECTION
     Route: 048
     Dates: start: 20011208
  2. VIDEX [Suspect]
     Indication: HIV INFECTION
     Route: 048
     Dates: start: 19920904, end: 20010416
  3. VIDEX EC [Suspect]
     Indication: HIV INFECTION
     Route: 048
     Dates: start: 20010417, end: 20011207
  4. ZERIT [Suspect]
     Indication: HIV INFECTION
     Route: 048
     Dates: start: 20011208, end: 20040702
  5. EPIVER [Suspect]
     Indication: HIV INFECTION
     Dosage: 150 MG TWICE DAILY 03-JUL-2004 TO 02-JUL-2000; 300 MG DAILY 03-JUL-2004-CONTINUE
     Route: 048
     Dates: start: 20011208
  6. NORVIR [Suspect]
     Indication: HIV INFECTION
     Route: 048
     Dates: start: 19990123, end: 20011207
  7. PEG-INTRON [Suspect]
     Indication: HEPATITIS C
     Route: 030
     Dates: start: 20050119
  8. REBETOL [Suspect]
     Indication: HEPATITIS C
     Dosage: 200 MG IN THE MORNING AND 400 MG IN THE AFTERNOON.
     Route: 048
     Dates: start: 20050119, end: 20061116
  9. KOGENATE [Concomitant]
     Indication: FACTOR VIII DEFICIENCY
     Route: 030
     Dates: start: 20050119

REACTIONS (3)
  - HEPATIC FUNCTION ABNORMAL [None]
  - HYPERLIPIDAEMIA [None]
  - PANCYTOPENIA [None]
